FAERS Safety Report 6434906-9 (Version None)
Quarter: 2009Q4

REPORT INFORMATION
  Report Type: 
  Country: None (occurrence: None)
  Receive Date: 20091110
  Receipt Date: 20091106
  Transmission Date: 20100525
  Serious: Yes (Hospitalization)
  Sender: FDA-Public Use
  Company Number: FR-WYE-G04813409

PATIENT
  Sex: Female

DRUGS (6)
  1. ADVIL [Suspect]
     Indication: PYREXIA
     Dosage: UNKNOWN
     Route: 048
     Dates: start: 20090907, end: 20090910
  2. ADVIL [Suspect]
     Indication: CHILLS
  3. ADVIL [Suspect]
     Indication: HEADACHE
  4. DOLIPRANE [Suspect]
     Indication: PYREXIA
     Dosage: UNKNOWN
     Route: 048
     Dates: start: 20090907, end: 20090909
  5. DOLIPRANE [Suspect]
     Indication: CHILLS
  6. DOLIPRANE [Suspect]
     Indication: HEADACHE

REACTIONS (6)
  - DRUG INEFFECTIVE [None]
  - DYSURIA [None]
  - EPSTEIN-BARR VIRUS INFECTION [None]
  - GENITAL TRACT INFLAMMATION [None]
  - SCAR [None]
  - VULVAL ULCERATION [None]
